FAERS Safety Report 18252299 (Version 1)
Quarter: 2020Q3

REPORT INFORMATION
  Report Type: Spontaneous
  Country: US (occurrence: US)
  Receive Date: 20200910
  Receipt Date: 20200910
  Transmission Date: 20201103
  Serious: No
  Sender: FDA-Public Use
  Company Number: US-FARMAPROD-202006-0765

PATIENT
  Sex: Female
  Weight: 103 kg

DRUGS (16)
  1. WARFARIN SODIUM. [Concomitant]
     Active Substance: WARFARIN SODIUM
  2. CARVEDILOL. [Concomitant]
     Active Substance: CARVEDILOL
  3. VITA?POS [Concomitant]
     Dosage: AT NIGHT
  4. METFORMIN HCL [Concomitant]
     Active Substance: METFORMIN HYDROCHLORIDE
  5. OXERVATE [Suspect]
     Active Substance: CENEGERMIN-BKBJ
     Indication: NEUROTROPHIC KERATOPATHY
     Route: 047
     Dates: start: 20200521
  6. VITAMINE D [Concomitant]
     Active Substance: CHOLECALCIFEROL
  7. POTASSIUM [Concomitant]
     Active Substance: POTASSIUM
     Dosage: 595(99)MG
  8. RETAINE [Concomitant]
     Active Substance: HYPROMELLOSE 2910 (4000 MPA.S)
  9. WARFARIN SODIUM. [Concomitant]
     Active Substance: WARFARIN SODIUM
  10. TYLENOL 8HR [Concomitant]
     Active Substance: ACETAMINOPHEN
  11. GLIMEPIRIDE. [Concomitant]
     Active Substance: GLIMEPIRIDE
  12. FEBUXOSTAT. [Concomitant]
     Active Substance: FEBUXOSTAT
  13. FUROSEMIDE. [Concomitant]
     Active Substance: FUROSEMIDE
  14. SIMVASTATIN. [Concomitant]
     Active Substance: SIMVASTATIN
  15. ASPIRINE [Concomitant]
     Active Substance: ASPIRIN
  16. LOSARTAN POTASSIUM. [Concomitant]
     Active Substance: LOSARTAN POTASSIUM

REACTIONS (6)
  - Product dose omission issue [Unknown]
  - Eye pain [Unknown]
  - Eyelid pain [Unknown]
  - Eye irritation [Unknown]
  - Dry eye [Unknown]
  - Eye colour change [Unknown]
